FAERS Safety Report 4378445-8 (Version None)
Quarter: 2004Q2

REPORT INFORMATION
  Report Type: 
  Country: None (occurrence: None)
  Receive Date: 20040609
  Receipt Date: 20040527
  Transmission Date: 20050107
  Serious: Yes (Other)
  Sender: FDA-Public Use
  Company Number: 2004023104

PATIENT
  Age: 45 Year
  Sex: Female
  Weight: 63.5036 kg

DRUGS (6)
  1. NEURONTIN [Suspect]
     Indication: CONVULSION
     Dosage: 3600 MG (TID), ORAL
     Route: 048
  2. TOPIRAMATE [Concomitant]
  3. PRAVASTATIN SODIUM (RAVASTATIN SODIUM) [Concomitant]
  4. SERTRALINE HYDROCHLORIDE [Concomitant]
  5. SOTALOL HCL [Concomitant]
  6. BUSPIRONE HCL [Concomitant]

REACTIONS (2)
  - CONVULSION [None]
  - PHARMACEUTICAL PRODUCT COMPLAINT [None]
